FAERS Safety Report 20038367 (Version 1)
Quarter: 2021Q4

REPORT INFORMATION
  Report Type: Spontaneous
  Country: CN (occurrence: None)
  Receive Date: 20211105
  Receipt Date: 20211105
  Transmission Date: 20220303
  Serious: Yes (Other)
  Sender: FDA-Public Use
  Company Number: 2021A793886

PATIENT
  Age: 1285 Day
  Sex: Male
  Weight: 20 kg

DRUGS (1)
  1. BUDESONIDE [Suspect]
     Active Substance: BUDESONIDE
     Indication: Asthma
     Route: 055
     Dates: start: 20210302

REACTIONS (1)
  - Growth disorder [Not Recovered/Not Resolved]

NARRATIVE: CASE EVENT DATE: 20211002
